FAERS Safety Report 4763639-X (Version None)
Quarter: 2005Q3

REPORT INFORMATION
  Report Type: 
  Country: None (occurrence: None)
  Receive Date: 20050908
  Receipt Date: 20050901
  Transmission Date: 20060218
  Serious: Yes (Other)
  Sender: FDA-Public Use
  Company Number: 200517755GDDC

PATIENT
  Age: 19 Year
  Sex: Female

DRUGS (2)
  1. FLAGYL [Suspect]
     Indication: PELVIC INFLAMMATORY DISEASE
     Dosage: DOSE: UNK
  2. OFLOXACIN [Concomitant]
     Indication: PELVIC INFLAMMATORY DISEASE
     Dosage: DOSE: UNK

REACTIONS (3)
  - ASTHENIA [None]
  - ENCEPHALITIS [None]
  - STUPOR [None]
